FAERS Safety Report 25014120 (Version 1)
Quarter: 2025Q1

REPORT INFORMATION
  Report Type: Other
  Country: NL (occurrence: NL)
  Receive Date: 20250226
  Receipt Date: 20250226
  Transmission Date: 20250409
  Serious: Yes (Life-Threatening, Other)
  Sender: B BRAUN
  Company Number: NL-B.Braun Medical Inc.-2171838

PATIENT
  Sex: Female

DRUGS (1)
  1. LIDOCAINE HYDROCHLORIDE [Suspect]
     Active Substance: LIDOCAINE HYDROCHLORIDE
     Indication: Epidural analgesia

REACTIONS (4)
  - Hypotension [Unknown]
  - Maternal exposure during delivery [Unknown]
  - Dysphagia [Unknown]
  - Respiratory failure [Unknown]
